FAERS Safety Report 8408153-5 (Version None)
Quarter: 2012Q2

REPORT INFORMATION
  Report Type: 
  Country: None (occurrence: None)
  Receive Date: 20120604
  Receipt Date: 20120521
  Transmission Date: 20120825
  Serious: Yes (Other)
  Sender: FDA-Public Use
  Company Number: CHPA2012US011380

PATIENT
  Age: 82 Year
  Sex: Female

DRUGS (3)
  1. DRUG THERAPY NOS [Concomitant]
     Dosage: 1 DF, QID
  2. ACID PREPARATIONS [Concomitant]
     Indication: DYSPEPSIA
  3. MAALOX ADV MAXIMUM STRENGTH ANTACID/ANTIGAS [Suspect]
     Indication: OESOPHAGEAL ULCER
     Dosage: 2 TSP, 2-3 TIMES PER DAY
     Route: 048

REACTIONS (3)
  - OFF LABEL USE [None]
  - BARRETT'S OESOPHAGUS [None]
  - INAPPROPRIATE SCHEDULE OF DRUG ADMINISTRATION [None]
